FAERS Safety Report 9105371 (Version 1)
Quarter: 2013Q1

REPORT INFORMATION
  Report Type: Spontaneous
  Country: FR (occurrence: FR)
  Receive Date: 20130220
  Receipt Date: 20130220
  Transmission Date: 20140127
  Serious: Yes (Hospitalization)
  Sender: FDA-Public Use
  Company Number: FR-GLAXOSMITHKLINE-B0868143A

PATIENT
  Age: 49 Year
  Sex: Female

DRUGS (3)
  1. ZELITREX [Suspect]
     Indication: OPPORTUNISTIC INFECTION PROPHYLAXIS
     Route: 048
     Dates: start: 20121220
  2. BACTRIM [Suspect]
     Indication: OPPORTUNISTIC INFECTION PROPHYLAXIS
     Route: 048
     Dates: start: 201212
  3. TEMODAL [Suspect]
     Indication: MALIGNANT MELANOMA
     Dosage: 150MGM2 EVERY TWO WEEKS
     Route: 065
     Dates: start: 20120707

REACTIONS (1)
  - Pancreatitis acute [Recovered/Resolved]
